FAERS Safety Report 10142629 (Version 2)
Quarter: 2014Q2

REPORT INFORMATION
  Report Type: Spontaneous
  Country: GB (occurrence: None)
  Receive Date: 20140425
  Receipt Date: 20140523
  Transmission Date: 20141212
  Serious: Yes (Other)
  Sender: FDA-Public Use
  Company Number: AUR-APL-2014-04738

PATIENT
  Age: 79 Year
  Sex: Male

DRUGS (2)
  1. EBIXA [Suspect]
     Indication: DEMENTIA ALZHEIMER^S TYPE
     Dosage: (20 MG, 1 D), ORAL
     Route: 048
     Dates: start: 2009
  2. MIRTAZAPINE [Suspect]
     Indication: PRODUCT USED FOR UNKNOWN INDICATION
     Dosage: 20 MG DAILY (ADMINISTERED AS 2MLS BY SYRINGE), UNKNOWN?

REACTIONS (13)
  - Gait disturbance [None]
  - Somnolence [None]
  - Dyspnoea [None]
  - Convulsion [None]
  - Fall [None]
  - Head injury [None]
  - Myoclonus [None]
  - Balance disorder [None]
  - Abdominal injury [None]
  - Weight increased [None]
  - Blood albumin decreased [None]
  - Depressed level of consciousness [None]
  - Unevaluable event [None]
